FAERS Safety Report 9100493 (Version 2)
Quarter: 2013Q1

REPORT INFORMATION
  Report Type: Spontaneous
  Country: FR (occurrence: FR)
  Receive Date: 20130214
  Receipt Date: 20130226
  Transmission Date: 20140127
  Serious: Yes (Other)
  Sender: FDA-Public Use
  Company Number: PHHY2013FR014503

PATIENT
  Sex: Female

DRUGS (2)
  1. NISISCO [Suspect]
     Dosage: 1 DF (80/12.5MG), DAILY
     Route: 048
     Dates: start: 20130123, end: 20130128
  2. NISIS [Suspect]

REACTIONS (1)
  - Wrong drug administered [Unknown]
